FAERS Safety Report 7900281-3 (Version None)
Quarter: 2011Q4

REPORT INFORMATION
  Report Type: 
  Country: None (occurrence: None)
  Receive Date: 20111108
  Receipt Date: 20111028
  Transmission Date: 20120403
  Serious: Yes (Other)
  Sender: FDA-Public Use
  Company Number: FI-JNJFOC-20111013233

PATIENT
  Age: 61 Year
  Sex: Male

DRUGS (2)
  1. REMICADE [Suspect]
     Route: 042
     Dates: start: 20111012
  2. REMICADE [Suspect]
     Indication: CROHN'S DISEASE
     Route: 042
     Dates: start: 20111026

REACTIONS (6)
  - THROAT TIGHTNESS [None]
  - INFUSION RELATED REACTION [None]
  - MALAISE [None]
  - CHEST PAIN [None]
  - URTICARIA [None]
  - ERYTHEMA [None]
